FAERS Safety Report 16110816 (Version 1)
Quarter: 2019Q1

REPORT INFORMATION
  Report Type: Spontaneous
  Country: JP (occurrence: JP)
  Receive Date: 20190325
  Receipt Date: 20190325
  Transmission Date: 20190418
  Serious: Yes (Hospitalization)
  Sender: FDA-Public Use
  Company Number: JP-ROCHE-2285312

PATIENT
  Age: 45 Year
  Sex: Female

DRUGS (25)
  1. RITUXAN [Suspect]
     Active Substance: RITUXIMAB
     Indication: B-CELL LYMPHOMA
     Route: 041
  2. RESTAMIN [Concomitant]
     Active Substance: DIPHENHYDRAMINE
     Route: 048
     Dates: start: 20181205, end: 20181205
  3. CALONAL [Concomitant]
     Active Substance: ACETAMINOPHEN
     Indication: PREMEDICATION
     Route: 048
     Dates: start: 20181126, end: 20181126
  4. CYCLOPHOSPHAMIDE MONOHYDRATE [Concomitant]
     Active Substance: CYCLOPHOSPHAMIDE
     Indication: B-CELL LYMPHOMA
     Route: 041
  5. RITUXAN [Suspect]
     Active Substance: RITUXIMAB
     Route: 041
  6. CISPLATIN. [Concomitant]
     Active Substance: CISPLATIN
     Indication: B-CELL LYMPHOMA
     Route: 041
  7. GAZYVA [Suspect]
     Active Substance: OBINUTUZUMAB
     Route: 042
  8. COIX SEED [Concomitant]
     Route: 048
  9. GAZYVA [Suspect]
     Active Substance: OBINUTUZUMAB
     Indication: B-CELL LYMPHOMA
     Route: 042
     Dates: start: 20181126
  10. CALONAL [Concomitant]
     Active Substance: ACETAMINOPHEN
     Route: 048
     Dates: start: 20181205, end: 20181205
  11. ETOPOSIDE. [Concomitant]
     Active Substance: ETOPOSIDE
  12. CYTARABINE. [Concomitant]
     Active Substance: CYTARABINE
  13. RITUXAN [Suspect]
     Active Substance: RITUXIMAB
     Route: 041
  14. ACICLOVIR [Concomitant]
     Active Substance: ACYCLOVIR
     Route: 048
  15. CALONAL [Concomitant]
     Active Substance: ACETAMINOPHEN
     Route: 048
  16. RESTAMIN [Concomitant]
     Active Substance: DIPHENHYDRAMINE
     Indication: PREMEDICATION
     Route: 048
     Dates: start: 20181126, end: 20181126
  17. RITUXAN [Suspect]
     Active Substance: RITUXIMAB
     Route: 041
  18. RITUXAN [Suspect]
     Active Substance: RITUXIMAB
     Route: 041
  19. BAKTAR [Concomitant]
     Active Substance: SULFAMETHOXAZOLE\TRIMETHOPRIM
     Route: 048
  20. RITUXAN [Suspect]
     Active Substance: RITUXIMAB
     Route: 041
  21. THYRADIN-S [Concomitant]
     Active Substance: LEVOTHYROXINE
     Route: 048
  22. PREDONINE [Concomitant]
     Active Substance: PREDNISOLONE
     Route: 048
  23. METHYLPREDNISOLONE SODIUM SUCCINATE. [Concomitant]
     Active Substance: METHYLPREDNISOLONE SODIUM SUCCINATE
     Indication: B-CELL LYMPHOMA
     Route: 041
  24. ALOXI [Concomitant]
     Active Substance: PALONOSETRON HYDROCHLORIDE
     Route: 041
  25. DEXART [Concomitant]
     Active Substance: DEXAMETHASONE SODIUM PHOSPHATE
     Indication: PREMEDICATION
     Route: 041
     Dates: start: 20181205, end: 20181205

REACTIONS (3)
  - Infusion related reaction [Recovered/Resolved]
  - Rash [Unknown]
  - Infusion related reaction [Unknown]

NARRATIVE: CASE EVENT DATE: 20181126
